FAERS Safety Report 18417225 (Version 1)
Quarter: 2020Q4

REPORT INFORMATION
  Report Type: Spontaneous
  Country: FR (occurrence: FR)
  Receive Date: 20201022
  Receipt Date: 20201022
  Transmission Date: 20210114
  Serious: Yes (Other)
  Sender: FDA-Public Use
  Company Number: FR-BAUSCH-BL-2020-029723

PATIENT
  Age: 18 Year
  Sex: Female

DRUGS (5)
  1. NOZINAN [Suspect]
     Active Substance: LEVOMEPROMAZINE
     Indication: WRONG PATIENT RECEIVED PRODUCT
     Dosage: 1 TOTAL
     Route: 048
     Dates: start: 20200902, end: 20200902
  2. MESTINON [Suspect]
     Active Substance: PYRIDOSTIGMINE BROMIDE
     Indication: WRONG PATIENT RECEIVED PRODUCT
     Dosage: 1 TOTAL
     Route: 048
     Dates: start: 20200902, end: 20200902
  3. LAROXYL [Suspect]
     Active Substance: AMITRIPTYLINE HYDROCHLORIDE
     Indication: WRONG PATIENT RECEIVED PRODUCT
     Dosage: 1 TOTAL
     Route: 048
     Dates: start: 20200902, end: 20200902
  4. PRIMPERAN [Suspect]
     Active Substance: METOCLOPRAMIDE HYDROCHLORIDE
     Indication: WRONG PATIENT RECEIVED PRODUCT
     Dosage: IN TOTAL
     Route: 048
     Dates: start: 20200902, end: 20200902
  5. TAMSULOSINE [Suspect]
     Active Substance: TAMSULOSIN HYDROCHLORIDE
     Indication: WRONG PATIENT RECEIVED PRODUCT
     Dosage: 1 TOTAL
     Route: 048
     Dates: start: 20200902, end: 20200902

REACTIONS (2)
  - Depressed level of consciousness [Recovered/Resolved]
  - Wrong patient received product [Recovered/Resolved]

NARRATIVE: CASE EVENT DATE: 20200902
